FAERS Safety Report 9605629 (Version 1)
Quarter: 2013Q4

REPORT INFORMATION
  Report Type: Spontaneous
  Country: FR (occurrence: FR)
  Receive Date: 20131008
  Receipt Date: 20131008
  Transmission Date: 20140711
  Serious: Yes (Death)
  Sender: FDA-Public Use
  Company Number: FR-ROCHE-1284654

PATIENT
  Age: 64 Year
  Sex: Male

DRUGS (12)
  1. RIVOTRIL [Suspect]
     Indication: STATUS EPILEPTICUS
     Route: 065
     Dates: start: 201305
  2. ARACYTINE [Suspect]
     Indication: LYMPHOMA
     Route: 037
     Dates: start: 20130627
  3. ARACYTINE [Suspect]
     Route: 037
     Dates: start: 20130627
  4. DEPO-MEDROL [Suspect]
     Indication: LYMPHOMA
     Route: 037
     Dates: start: 20130627
  5. KEPPRA [Suspect]
     Indication: STATUS EPILEPTICUS
     Route: 065
     Dates: start: 20130602
  6. VIMPAT [Suspect]
     Indication: STATUS EPILEPTICUS
     Route: 065
     Dates: start: 2013
  7. PRODILANTIN [Suspect]
     Indication: STATUS EPILEPTICUS
     Route: 065
     Dates: start: 201305
  8. CALCIUM FOLINATE [Suspect]
     Indication: PRODUCT USED FOR UNKNOWN INDICATION
     Route: 042
     Dates: start: 20130705
  9. CALCIUM FOLINATE [Suspect]
     Route: 048
     Dates: start: 20130706
  10. METHOTREXATE [Suspect]
     Indication: LYMPHOMA
     Route: 037
     Dates: start: 20130627
  11. METHOTREXATE [Suspect]
     Dosage: (3G/M2 AT DAY 8)
     Route: 042
     Dates: start: 20130705
  12. ACICLOVIR [Concomitant]
     Route: 065

REACTIONS (4)
  - Bone marrow failure [Fatal]
  - Bacteraemia [Fatal]
  - Melaena [Fatal]
  - Histiocytosis haematophagic [Fatal]
